FAERS Safety Report 4530594-7 (Version None)
Quarter: 2004Q4

REPORT INFORMATION
  Report Type: 
  Country: None (occurrence: None)
  Receive Date: 20041217
  Receipt Date: 20041217
  Transmission Date: 20050328
  Serious: No
  Sender: FDA-Public Use
  Company Number: None

PATIENT
  Age: 4 Year
  Sex: Male
  Weight: 18.1439 kg

DRUGS (2)
  1. REMERON [Suspect]
     Indication: ABNORMAL BEHAVIOUR
     Dosage: 15 MG CAPSULE ORALLY DAILY
     Route: 048
  2. REMERON [Suspect]
     Indication: INSOMNIA
     Dosage: 15 MG CAPSULE ORALLY DAILY
     Route: 048

REACTIONS (3)
  - AGGRESSION [None]
  - INSOMNIA [None]
  - PHARMACEUTICAL PRODUCT COMPLAINT [None]
